FAERS Safety Report 9251986 (Version 4)
Quarter: 2013Q4

REPORT INFORMATION
  Report Type: Spontaneous
  Country: US (occurrence: US)
  Receive Date: 20130424
  Receipt Date: 20131202
  Transmission Date: 20140711
  Serious: Yes (Hospitalization)
  Sender: FDA-Public Use
  Company Number: US-ACTELION-A-NJ2013-82246

PATIENT
  Age: 65 Year
  Sex: Female

DRUGS (4)
  1. TRACLEER [Suspect]
     Indication: PULMONARY ARTERIAL HYPERTENSION
     Dosage: UNK
     Route: 048
  2. REMODULIN [Concomitant]
     Route: 042
  3. SILDENAFIL [Concomitant]
  4. COUMADIN [Concomitant]

REACTIONS (5)
  - Sepsis [Recovering/Resolving]
  - Chills [Recovering/Resolving]
  - Device related infection [Recovering/Resolving]
  - Infusion site infection [Unknown]
  - Infusion site erythema [Unknown]
